FAERS Safety Report 10168369 (Version 2)
Quarter: 2014Q2

REPORT INFORMATION
  Report Type: Spontaneous
  Country: CA (occurrence: CA)
  Receive Date: 20140513
  Receipt Date: 20140611
  Transmission Date: 20141212
  Serious: Yes (Hospitalization, Congenital Anomaly)
  Sender: FDA-Public Use
  Company Number: CA-ROCHE-1399933

PATIENT
  Age: 49 Year
  Sex: Female
  Weight: 55.6 kg

DRUGS (12)
  1. HERCEPTIN [Suspect]
     Indication: BREAST NEOPLASM
     Route: 042
     Dates: start: 20140225, end: 20140429
  2. TAXOTERE [Concomitant]
     Route: 042
  3. PAXIL [Concomitant]
     Route: 048
  4. LASIX [Concomitant]
     Route: 048
     Dates: start: 20140322
  5. DEXILANT [Concomitant]
     Indication: GASTROOESOPHAGEAL REFLUX DISEASE
     Route: 048
     Dates: start: 20131117
  6. EURO-K [Concomitant]
     Route: 048
     Dates: start: 20140308
  7. SERAX (CANADA) [Concomitant]
     Route: 048
  8. DECADRON [Concomitant]
     Route: 048
     Dates: start: 20140225, end: 20140429
  9. STEMETIL [Concomitant]
     Dosage: IMMEDIATE RELEASE
     Route: 048
     Dates: start: 20131223, end: 20140429
  10. BENADRYL (CANADA) [Concomitant]
     Route: 048
     Dates: start: 20140224, end: 20140429
  11. FILGRASTIM [Concomitant]
     Indication: NEUTROPENIA
     Route: 058
     Dates: start: 20140225, end: 20140429
  12. IMODIUM [Concomitant]
     Dosage: 4MG STAT, FOLLOWED BY 2MG QTH, AS REQUIRED
     Route: 065
     Dates: start: 20131223, end: 20140429

REACTIONS (3)
  - Deep vein thrombosis [Recovering/Resolving]
  - Pulmonary embolism [Recovering/Resolving]
  - Pneumonia [Unknown]
